FAERS Safety Report 7607707-3 (Version None)
Quarter: 2011Q3

REPORT INFORMATION
  Report Type: 
  Country: None (occurrence: None)
  Receive Date: 20110713
  Receipt Date: 20110524
  Transmission Date: 20111222
  Serious: Yes (Hospitalization, Disabling)
  Sender: FDA-Public Use
  Company Number: PHEH2009US18510

PATIENT
  Sex: Male

DRUGS (23)
  1. POTASSIUM CHLORIDE [Concomitant]
     Dosage: 10 MG, BID
  2. SIMVASTATIN [Concomitant]
     Dosage: 40 MG, QOD
  3. FUROSEMIDE [Concomitant]
     Dosage: 40 MG, QD
  4. ASPIRIN [Concomitant]
     Dosage: 325 MG, QD
  5. SPIRIVA [Concomitant]
     Dosage: 2 DF(PUFFS), QD
  6. EXTAVIA [Suspect]
     Indication: MULTIPLE SCLEROSIS
     Dosage: 0.25 MG, EVERY OTHER DAY
     Route: 058
     Dates: start: 20091215
  7. AMLODIPINE BESYLATE AND BENAZEPRIL HCL [Concomitant]
     Dosage: 5/20 QD
  8. CALCIUM WITH VITAMIN D [Concomitant]
     Dosage: 500 MG, QD
  9. PANTOPRAZOLE SODIUM [Concomitant]
     Dosage: 40MG, OD
     Route: 048
  10. PROVIGIL [Concomitant]
     Dosage: 200 MG, BID
  11. OXYGEN THERAPY [Concomitant]
     Dosage: 20 L, UNK
  12. ADVAIR DISKUS 100/50 [Concomitant]
     Dosage: 230/21 QHS
  13. TIZANIDINE HYDROCHLORIDE [Concomitant]
     Dosage: 40 MG, QID
  14. ZETIA [Concomitant]
     Dosage: 10 MG, QOD
  15. CYANOCOBALAMIN [Concomitant]
     Dosage: 1 DF, QD
  16. BACLOFEN [Concomitant]
     Dosage: 20 MG, QID
  17. FISH OIL [Concomitant]
     Dosage: 1200 MG, TID
  18. CITALOPRAM HYDROBROMIDE [Concomitant]
     Dosage: 40MG, OD
     Route: 048
  19. FLUOXETINE [Concomitant]
     Dosage: 10 MG, QD
  20. PROTONIX [Concomitant]
     Dosage: 40 MG, QD
  21. LAMOTRIGINE [Concomitant]
     Dosage: 100 MG, BID
  22. KLOR-CON [Concomitant]
     Dosage: 1 DF, BID
     Route: 048
  23. ASPIRIN [Concomitant]
     Dosage: 8 MG, OD
     Route: 048

REACTIONS (7)
  - INJECTION SITE SCAB [None]
  - SENSORY DISTURBANCE [None]
  - INJECTION SITE HAEMATOMA [None]
  - INJECTION SITE PAIN [None]
  - COLITIS [None]
  - INJECTION SITE MASS [None]
  - MUSCULOSKELETAL STIFFNESS [None]
